FAERS Safety Report 17248052 (Version 1)
Quarter: 2020Q1

REPORT INFORMATION
  Report Type: Spontaneous
  Country: US (occurrence: US)
  Receive Date: 20200108
  Receipt Date: 20200108
  Transmission Date: 20200409
  Serious: No
  Sender: FDA-Public Use
  Company Number: US-SA-2020SA004811

PATIENT
  Age: 5 Year
  Sex: Female

DRUGS (10)
  1. SANDIMMUNE [Concomitant]
     Active Substance: CYCLOSPORINE
  2. TRIAMCINOLONE [Concomitant]
     Active Substance: TRIAMCINOLONE
  3. QVAR [Concomitant]
     Active Substance: BECLOMETHASONE DIPROPIONATE
  4. MONTELUKAST [Concomitant]
     Active Substance: MONTELUKAST SODIUM
  5. DUPIXENT [Suspect]
     Active Substance: DUPILUMAB
     Indication: DERMATITIS ATOPIC
     Dosage: 300 MG, 1X
     Route: 058
     Dates: start: 20191209, end: 20191209
  6. MYCOPHENOLATE [Concomitant]
     Active Substance: MYCOPHENOLIC ACID
  7. DUPIXENT [Suspect]
     Active Substance: DUPILUMAB
     Dosage: 150 MG, QOW
     Route: 058
     Dates: start: 201912
  8. BETAMETH DIPROPIONATE [Concomitant]
  9. DESONIDE. [Concomitant]
     Active Substance: DESONIDE
  10. DOXEPIN [Concomitant]
     Active Substance: DOXEPIN

REACTIONS (2)
  - Dermatitis atopic [Not Recovered/Not Resolved]
  - Product use issue [Unknown]
